FAERS Safety Report 15310248 (Version 3)
Quarter: 2019Q2

REPORT INFORMATION
  Report Type: Spontaneous
  Country: US (occurrence: US)
  Receive Date: 20180823
  Receipt Date: 20190523
  Transmission Date: 20190711
  Serious: No
  Sender: FDA-Public Use
  Company Number: US-PFIZER INC-2018306119

PATIENT
  Age: 53 Year
  Sex: Male
  Weight: 117.1 kg

DRUGS (2)
  1. GABAPENTIN. [Suspect]
     Active Substance: GABAPENTIN
     Indication: NEURALGIA
  2. GABAPENTIN. [Suspect]
     Active Substance: GABAPENTIN
     Indication: PAIN IN EXTREMITY
     Dosage: UNK, 1X/DAY
     Dates: start: 201805

REACTIONS (3)
  - Product use in unapproved indication [Unknown]
  - Erythema [Recovered/Resolved]
  - Off label use [Unknown]
